FAERS Safety Report 22383962 (Version 2)
Quarter: 2023Q4

REPORT INFORMATION
  Report Type: Spontaneous
  Country: CN (occurrence: CN)
  Receive Date: 20230530
  Receipt Date: 20231006
  Transmission Date: 20240110
  Serious: Yes (Hospitalization, Other)
  Sender: FDA-Public Use
  Company Number: CN-BAYER-2023A072427

PATIENT
  Age: 48 Year
  Sex: Male
  Weight: 77.4 kg

DRUGS (2)
  1. ULTRAVIST [Suspect]
     Active Substance: IOPROMIDE
     Indication: Computerised tomogram abdomen
     Dosage: 76.89 G, ONCE
     Route: 041
     Dates: start: 20230510, end: 20230510
  2. SODIUM CHLORIDE [Concomitant]
     Active Substance: SODIUM CHLORIDE
     Indication: Vehicle solution use
     Dosage: 250 ML, ONCE
     Route: 041
     Dates: start: 20230510, end: 20230510

REACTIONS (4)
  - Contrast media allergy [Recovering/Resolving]
  - Drug eruption [Recovering/Resolving]
  - Haemorrhage subcutaneous [Recovering/Resolving]
  - Incorrect drug administration rate [None]

NARRATIVE: CASE EVENT DATE: 20230510
